FAERS Safety Report 10026066 (Version 3)
Quarter: 2014Q3

REPORT INFORMATION
  Report Type: Report from Study
  Country: US (occurrence: US)
  Receive Date: 20140320
  Receipt Date: 20140908
  Transmission Date: 20150326
  Serious: Yes (Hospitalization, Other)
  Sender: FDA-Public Use
  Company Number: US-ABBVIE-14P-163-1212043-00

PATIENT
  Age: 56 Year
  Sex: Male
  Weight: 89.89 kg

DRUGS (9)
  1. HUMIRA [Suspect]
     Active Substance: ADALIMUMAB
     Indication: PRODUCT USED FOR UNKNOWN INDICATION
     Dates: start: 20140111
  2. ENTOCORT [Concomitant]
     Active Substance: BUDESONIDE
     Indication: PRODUCT USED FOR UNKNOWN INDICATION
  3. POTASSIUM [Concomitant]
     Active Substance: POTASSIUM
     Indication: PRODUCT USED FOR UNKNOWN INDICATION
  4. HUMIRA [Suspect]
     Active Substance: ADALIMUMAB
     Dates: start: 20140623
  5. JANUMET [Concomitant]
     Active Substance: METFORMIN HYDROCHLORIDE\SITAGLIPTIN PHOSPHATE
     Indication: DIABETES MELLITUS
  6. VITAMIN B12 [Concomitant]
     Active Substance: CYANOCOBALAMIN
     Indication: BLOOD COUNT ABNORMAL
  7. ALLOPURINOL. [Concomitant]
     Active Substance: ALLOPURINOL
     Indication: NEPHROLITHIASIS
  8. TYLENOL [Concomitant]
     Active Substance: ACETAMINOPHEN
     Indication: ARTHRITIS
  9. MAGNESIUM [Concomitant]
     Active Substance: MAGNESIUM
     Indication: MUSCLE SPASMS

REACTIONS (22)
  - Muscle spasms [Recovered/Resolved]
  - Blood chloride increased [Unknown]
  - Electrolyte depletion [Recovered/Resolved]
  - Small intestinal obstruction [Unknown]
  - Feeling abnormal [Unknown]
  - Muscle spasms [Unknown]
  - Crohn^s disease [Recovered/Resolved]
  - Abdominal pain lower [Unknown]
  - Faecal volume increased [Not Recovered/Not Resolved]
  - Blood albumin decreased [Unknown]
  - Diarrhoea [Recovered/Resolved]
  - Blood urea increased [Unknown]
  - Blood alkaline phosphatase increased [Unknown]
  - Drug ineffective [Unknown]
  - Blood magnesium decreased [Unknown]
  - Flatulence [Unknown]
  - Protein total decreased [Unknown]
  - Dehydration [Unknown]
  - Trismus [Unknown]
  - Carbon dioxide decreased [Unknown]
  - Glomerular filtration rate decreased [Unknown]
  - Blood phosphorus increased [Unknown]

NARRATIVE: CASE EVENT DATE: 20140225
